FAERS Safety Report 24034696 (Version 3)
Quarter: 2024Q3

REPORT INFORMATION
  Report Type: Spontaneous
  Country: US (occurrence: US)
  Receive Date: 20240701
  Receipt Date: 20240705
  Transmission Date: 20241016
  Serious: No
  Sender: ROCHE
  Company Number: US-ROCHE-3568356

PATIENT
  Age: 5 Year
  Sex: Female
  Weight: 16.4 kg

DRUGS (1)
  1. EVRYSDI [Suspect]
     Active Substance: RISDIPLAM
     Indication: Product used for unknown indication
     Route: 065
     Dates: start: 2023

REACTIONS (5)
  - Motor dysfunction [Unknown]
  - Muscular weakness [Unknown]
  - Asthenia [Recovered/Resolved]
  - Expired product administered [Unknown]
  - General physical health deterioration [Recovered/Resolved]
